FAERS Safety Report 8513199 (Version 2)
Quarter: 2013Q1

REPORT INFORMATION
  Report Type: Spontaneous
  Country: US (occurrence: US)
  Receive Date: 20120416
  Receipt Date: 20130204
  Transmission Date: 20140127
  Serious: No
  Sender: FDA-Public Use
  Company Number: US-BIOGENIDEC-2012BI012059

PATIENT
  Age: 36 Year
  Sex: Female

DRUGS (3)
  1. TYSABRI [Suspect]
     Indication: MULTIPLE SCLEROSIS
     Route: 042
     Dates: start: 20100625
  2. LEXAPRO [Concomitant]
     Indication: DEPRESSION
     Route: 048
  3. CLONAZEPAM [Concomitant]
     Indication: ANXIETY
     Route: 048

REACTIONS (7)
  - Vitamin B12 deficiency [Recovered/Resolved]
  - Vitamin D decreased [Unknown]
  - Blood iron decreased [Not Recovered/Not Resolved]
  - Muscular weakness [Not Recovered/Not Resolved]
  - Multiple sclerosis relapse [Recovered/Resolved]
  - Fatigue [Not Recovered/Not Resolved]
  - Dizziness [Recovered/Resolved]
